FAERS Safety Report 16731833 (Version 2)
Quarter: 2019Q4

REPORT INFORMATION
  Report Type: Report from Study
  Country: ES (occurrence: ES)
  Receive Date: 20190822
  Receipt Date: 20191025
  Transmission Date: 20200122
  Serious: Yes (Disabling)
  Sender: FDA-Public Use
  Company Number: ES-CELGENEUS-ESP-20190805921

PATIENT
  Age: 79 Year
  Sex: Female
  Weight: 47 kg

DRUGS (18)
  1. CLARITHROMYCIN. [Suspect]
     Active Substance: CLARITHROMYCIN
     Indication: PLASMA CELL MYELOMA
     Route: 065
     Dates: start: 20170523, end: 20180605
  2. ZOLEDRONIC ACID [Concomitant]
     Active Substance: ZOLEDRONIC ACID
     Indication: PRODUCT USED FOR UNKNOWN INDICATION
     Route: 065
  3. FENTANYL. [Concomitant]
     Active Substance: FENTANYL
     Indication: ANALGESIC THERAPY
     Dosage: 50 MICROGRAM PATCH
     Route: 065
  4. PARACETAMOL [Concomitant]
     Active Substance: ACETAMINOPHEN
     Indication: PAIN PROPHYLAXIS
     Dosage: 3 GRAM
     Route: 065
  5. LENALIDOMIDE [Suspect]
     Active Substance: LENALIDOMIDE
     Indication: PLASMA CELL MYELOMA
     Route: 048
     Dates: start: 20170523
  6. ERYTHROPOIETIN [Concomitant]
     Active Substance: ERYTHROPOIETIN
     Indication: ANAEMIA
     Route: 065
  7. ACETYLSALICYLIC ACID [Concomitant]
     Active Substance: ASPIRIN
     Indication: THROMBOSIS PROPHYLAXIS
     Dosage: 100 MILLIGRAM
     Route: 048
  8. LORMETAZEPAM [Concomitant]
     Active Substance: LORMETAZEPAM
     Indication: ANALGESIC THERAPY
     Dosage: 1 MILLIGRAM
     Route: 065
  9. DEXAMETHASONE. [Suspect]
     Active Substance: DEXAMETHASONE
     Indication: PLASMA CELL MYELOMA
     Route: 065
     Dates: start: 20170523
  10. OMEPRAZOLE. [Concomitant]
     Active Substance: OMEPRAZOLE
     Indication: ANALGESIC THERAPY
     Dosage: 20 MILLIGRAM
     Route: 065
  11. EUTIROX [Concomitant]
     Active Substance: LEVOTHYROXINE SODIUM
     Indication: ANALGESIC THERAPY
     Dosage: 1 COMPOUND
     Route: 065
  12. DEXAMETHASONE. [Suspect]
     Active Substance: DEXAMETHASONE
     Dosage: DOSE REDUCED
     Route: 065
     Dates: start: 20180605
  13. METOCLOPRAMIDE. [Concomitant]
     Active Substance: METOCLOPRAMIDE
     Indication: NAUSEA
     Dosage: 30 MILLIGRAM
     Route: 048
  14. SEPTRIN FORTE [Concomitant]
     Active Substance: SULFAMETHOXAZOLE\TRIMETHOPRIM
     Indication: INFECTION PROPHYLAXIS
     Dosage: 800/160MG
     Route: 048
  15. AMITRIPTYLINE [Concomitant]
     Active Substance: AMITRIPTYLINE
     Indication: ANALGESIC THERAPY
     Dosage: 50 MILLIGRAM
     Route: 065
  16. SIMVASTATIN. [Concomitant]
     Active Substance: SIMVASTATIN
     Indication: ANALGESIC THERAPY
     Route: 065
  17. FORSTEO [Concomitant]
     Active Substance: TERIPARATIDE
     Indication: ANALGESIC THERAPY
     Dosage: 20 MICROGRAM
     Route: 058
  18. MORPHINE [Concomitant]
     Active Substance: MORPHINE
     Indication: ANALGESIC THERAPY
     Route: 048

REACTIONS (1)
  - Toxicity to various agents [Recovered/Resolved]

NARRATIVE: CASE EVENT DATE: 20180703
